FAERS Safety Report 7235963-2 (Version None)
Quarter: 2011Q1

REPORT INFORMATION
  Report Type: 
  Country: None (occurrence: None)
  Receive Date: 20110120
  Receipt Date: 20110104
  Transmission Date: 20110831
  Serious: Yes (Death)
  Sender: FDA-Public Use
  Company Number: A0907244A

PATIENT
  Sex: Male

DRUGS (1)
  1. PAXIL [Suspect]
     Route: 048
     Dates: start: 20081201, end: 20081201

REACTIONS (3)
  - COMPLETED SUICIDE [None]
  - ABNORMAL DREAMS [None]
  - SUICIDAL IDEATION [None]
